FAERS Safety Report 13193047 (Version 2)
Quarter: 2017Q1

REPORT INFORMATION
  Report Type: Report from Study
  Country: MX (occurrence: MX)
  Receive Date: 20170207
  Receipt Date: 20170215
  Transmission Date: 20170428
  Serious: Yes (Hospitalization, Other)
  Sender: FDA-Public Use
  Company Number: PHHY2017MX018743

PATIENT
  Age: 88 Year
  Sex: Female

DRUGS (3)
  1. EXELON PATCH [Suspect]
     Active Substance: RIVASTIGMINE
     Indication: DEMENTIA ALZHEIMER^S TYPE
     Dosage: 4.6 MG (PATCH 5 CM2), QD
     Route: 062
     Dates: start: 2013
  2. AKATINOL MEMANTINE [Concomitant]
     Indication: OXYGEN CONSUMPTION DECREASED
     Dosage: 20 MG, QD
     Route: 048
     Dates: start: 2008
  3. GLIMEPIRIDE. [Concomitant]
     Active Substance: GLIMEPIRIDE
     Indication: DIABETES MELLITUS
     Dosage: 2 MG, QD
     Route: 048
     Dates: end: 20170202

REACTIONS (8)
  - Abasia [Not Recovered/Not Resolved]
  - Blood glucose decreased [Unknown]
  - Blood glucose decreased [Recovered/Resolved]
  - Malaise [Unknown]
  - Diabetic coma [Recovered/Resolved]
  - Pneumonia [Not Recovered/Not Resolved]
  - Blood sodium decreased [Recovered/Resolved]
  - Fatigue [Not Recovered/Not Resolved]

NARRATIVE: CASE EVENT DATE: 20170202
